FAERS Safety Report 20643509 (Version 2)
Quarter: 2022Q2

REPORT INFORMATION
  Report Type: Report from Study
  Country: DE (occurrence: None)
  Receive Date: 20220328
  Receipt Date: 20220507
  Transmission Date: 20220721
  Serious: Yes (Hospitalization)
  Sender: FDA-Public Use
  Company Number: DE-ROCHE-3054452

PATIENT
  Age: 32 Year
  Sex: Female
  Weight: 67 kg

DRUGS (36)
  1. ATEZOLIZUMAB [Suspect]
     Active Substance: ATEZOLIZUMAB
     Indication: Triple negative breast cancer
     Dosage: DATE OF LAST DOSE PRIOR TO AE - 10/FEB/2022
     Route: 041
     Dates: start: 20210827
  2. PACLITAXEL [Suspect]
     Active Substance: PACLITAXEL
     Indication: Triple negative breast cancer
     Dosage: DATE OF LAST DOSE PRIOR TO SAE: 02/DEC/2021
     Route: 042
     Dates: start: 20210909
  3. CARBOPLATIN [Suspect]
     Active Substance: CARBOPLATIN
     Indication: Triple negative breast cancer
     Dosage: DATE OF LAST DOSE PRIOR TO SAE: 28/OCT/2021
     Route: 042
     Dates: start: 20210909
  4. EPIRUBICIN [Suspect]
     Active Substance: EPIRUBICIN
     Indication: Triple negative breast cancer
     Dosage: DATE OF LAST DOSE PRIOR TO SAE: 10/FEB/2022
     Route: 042
     Dates: start: 20211209
  5. CYCLOPHOSPHAMIDE [Suspect]
     Active Substance: CYCLOPHOSPHAMIDE
     Indication: Triple negative breast cancer
     Dosage: DATE OF LAST DOSE PRIOR TO SAE: 10/FEB/2022
     Route: 042
     Dates: start: 20211209
  6. IBUPROFEN [Concomitant]
     Active Substance: IBUPROFEN
     Dates: start: 20210906
  7. IBUPROFEN [Concomitant]
     Active Substance: IBUPROFEN
     Dates: start: 20210921
  8. RANITIDINE [Concomitant]
     Active Substance: RANITIDINE
     Dates: start: 20210909, end: 20210909
  9. DIMETHINDENE [Concomitant]
     Active Substance: DIMETHINDENE
     Dates: start: 20210909, end: 20210909
  10. DIMETHINDENE [Concomitant]
     Active Substance: DIMETHINDENE
     Dates: start: 20210923, end: 20210923
  11. DIMETHINDENE [Concomitant]
     Active Substance: DIMETHINDENE
     Dates: start: 20211028, end: 20211028
  12. PREDNISOLONE [Concomitant]
     Active Substance: PREDNISOLONE
     Dates: start: 20210909, end: 20210909
  13. PREDNISOLONE [Concomitant]
     Active Substance: PREDNISOLONE
     Dates: start: 20210923, end: 20210923
  14. DEXAMETHASONE [Concomitant]
     Active Substance: DEXAMETHASONE
     Dosage: OTHER
     Dates: start: 20210915, end: 20211203
  15. DEXAMETHASONE [Concomitant]
     Active Substance: DEXAMETHASONE
     Dates: start: 20210909, end: 20211203
  16. DEXAMETHASONE [Concomitant]
     Active Substance: DEXAMETHASONE
     Dosage: OTHER
     Dates: start: 20211209, end: 20220211
  17. CHLORHEXIDINE [Concomitant]
     Active Substance: CHLORHEXIDINE
     Dates: start: 20210916
  18. DEXPANTHENOL [Concomitant]
     Active Substance: DEXPANTHENOL
     Route: 045
     Dates: start: 20210916
  19. GRANISETRON [Concomitant]
     Active Substance: GRANISETRON
     Dosage: OTHER
     Dates: start: 20210909, end: 20211203
  20. DIMETINDENMALEAT [Concomitant]
     Dosage: OTHER
     Dates: start: 20210916, end: 20211203
  21. CIMETIDIN [Concomitant]
     Dosage: OTHER
     Dates: start: 20210916, end: 20211203
  22. CIMETIDIN [Concomitant]
     Dates: start: 20210923, end: 20210923
  23. PANTOZOL [Concomitant]
     Active Substance: PANTOPRAZOLE SODIUM
     Dates: start: 20210923
  24. CEFUROXIME [Concomitant]
     Active Substance: CEFUROXIME
     Dates: start: 20210924, end: 20210925
  25. CIPROFLOXACIN [Concomitant]
     Active Substance: CIPROFLOXACIN
     Dates: start: 20210925
  26. CIPROFLOXACIN [Concomitant]
     Active Substance: CIPROFLOXACIN
     Dates: start: 20211216, end: 20211220
  27. CIPROFLOXACIN [Concomitant]
     Active Substance: CIPROFLOXACIN
     Dates: start: 20210203, end: 20210207
  28. CIPROFLOXACIN [Concomitant]
     Active Substance: CIPROFLOXACIN
     Dates: start: 20220217, end: 20220220
  29. ACETAMINOPHEN [Concomitant]
     Active Substance: ACETAMINOPHEN
     Dosage: OTHER
     Dates: start: 20211007
  30. FAMOTIDINE [Concomitant]
     Active Substance: FAMOTIDINE
     Dates: start: 20211125, end: 20211125
  31. APREPITANT [Concomitant]
     Active Substance: APREPITANT
     Dosage: 125 MG, 80 MG OTHER
     Dates: start: 20211209, end: 20220211
  32. MESNA [Concomitant]
     Active Substance: MESNA
     Dosage: 200.4 MG, 400.8 MG OTHER
     Dates: start: 20211209, end: 20220211
  33. FLOXAL [Concomitant]
     Active Substance: OFLOXACIN
     Dosage: 3 MG/ML
     Dates: start: 20211224, end: 20211231
  34. DEXA EDO [Concomitant]
     Active Substance: DEXAMETHASONE SODIUM PHOSPHATE
     Dosage: 1.3 MG/ML
     Dates: start: 20211224, end: 20211231
  35. PANTOPRAZOLE [Concomitant]
     Active Substance: PANTOPRAZOLE
     Dates: start: 20211211
  36. PERFLUOROHEXYLOCTANE [Concomitant]
     Active Substance: PERFLUOROHEXYLOCTANE
     Dates: start: 20220210

REACTIONS (1)
  - Neutrophil count decreased [Recovered/Resolved]

NARRATIVE: CASE EVENT DATE: 20220217
